FAERS Safety Report 5792857-7 (Version None)
Quarter: 2008Q2

REPORT INFORMATION
  Report Type: 
  Country: None (occurrence: None)
  Receive Date: 20080627
  Receipt Date: 20080624
  Transmission Date: 20081010
  Serious: Yes (Death)
  Sender: FDA-Public Use
  Company Number: GB-RANBAXY-2008RR-16077

PATIENT

DRUGS (15)
  1. SIMVASTATIN 10MG TABLETS [Suspect]
     Dosage: 40 MG, UNK
     Route: 048
  2. ATENOLOL [Concomitant]
     Dosage: 50 MG, UNK
     Route: 065
  3. WARFARIN SODIUM [Concomitant]
     Route: 065
  4. HEPARIN [Concomitant]
  5. REMIFENTANYL [Concomitant]
  6. PROPOFOL [Concomitant]
  7. ATRACURIUM BESYLATE [Concomitant]
  8. MIDAZOLAM HCL [Concomitant]
  9. TEICOPLANIN [Concomitant]
  10. EPHEDRINE SUL CAP [Concomitant]
  11. ZOFRAN [Concomitant]
  12. DIAMORPHINE [Concomitant]
  13. NITROGLYCERIN [Concomitant]
     Indication: BLOOD PRESSURE
  14. LORAZEPAM [Concomitant]
     Indication: CONVULSION
  15. VALPROATE SODIUM [Concomitant]
     Indication: CONVULSION

REACTIONS (2)
  - CEREBRAL HYPERPERFUSION SYNDROME [None]
  - HAEMORRHAGE INTRACRANIAL [None]
